FAERS Safety Report 11368061 (Version 1)
Quarter: 2015Q3

REPORT INFORMATION
  Report Type: Spontaneous
  Country: US (occurrence: US)
  Receive Date: 20150811
  Receipt Date: 20150811
  Transmission Date: 20151125
  Serious: No
  Sender: FDA-Public Use
  Company Number: US-ELI_LILLY_AND_COMPANY-US201312006515

PATIENT
  Sex: Male

DRUGS (5)
  1. CELEBREX [Concomitant]
     Active Substance: CELECOXIB
     Dosage: UNK, UNKNOWN
     Route: 065
  2. SIMVASTATIN. [Concomitant]
     Active Substance: SIMVASTATIN
     Dosage: UNK, UNKNOWN
     Route: 065
  3. LYRICA [Concomitant]
     Active Substance: PREGABALIN
     Dosage: UNK, UNKNOWN
     Route: 065
  4. AXIRON [Suspect]
     Active Substance: TESTOSTERONE
     Indication: BLOOD TESTOSTERONE DECREASED
     Dosage: 30 MG, QD
     Route: 061
     Dates: start: 201212, end: 20131217
  5. SUPER BETA PROSTATE [Concomitant]
     Active Substance: DIETARY SUPPLEMENT
     Dosage: UNK, UNKNOWN
     Route: 065

REACTIONS (4)
  - Micturition urgency [Recovered/Resolved]
  - Intentional product misuse [Unknown]
  - Asthenia [Unknown]
  - Blood testosterone decreased [Recovered/Resolved]
